FAERS Safety Report 4412112-7 (Version None)
Quarter: 2004Q3

REPORT INFORMATION
  Report Type: 
  Country: None (occurrence: None)
  Receive Date: 20040730
  Receipt Date: 20040721
  Transmission Date: 20050211
  Serious: Yes (Hospitalization)
  Sender: FDA-Public Use
  Company Number: GB-GLAXOSMITHKLINE-B0339975A

PATIENT
  Age: 32 Year
  Sex: Male

DRUGS (2)
  1. WELLBUTRIN [Suspect]
     Indication: DEPRESSION
     Dosage: 150MG VARIABLE DOSE
     Route: 048
     Dates: start: 20040401, end: 20040401
  2. ST JOHNS WORT [Concomitant]

REACTIONS (7)
  - HALLUCINATION, AUDITORY [None]
  - HALLUCINATION, VISUAL [None]
  - MUSCLE SPASMS [None]
  - MUSCLE TWITCHING [None]
  - PARAESTHESIA [None]
  - SUICIDAL IDEATION [None]
  - TINNITUS [None]
